FAERS Safety Report 5321386-X (Version None)
Quarter: 2007Q2

REPORT INFORMATION
  Report Type: 
  Country: None (occurrence: None)
  Receive Date: 20070507
  Receipt Date: 20070507
  Transmission Date: 20071010
  Serious: Yes (Other)
  Sender: FDA-Public Use
  Company Number: None

PATIENT
  Age: 63 Year
  Sex: Female
  Weight: 60.3284 kg

DRUGS (1)
  1. CALCIUM CITRATE [Suspect]
     Indication: OSTEOPOROSIS
     Dosage: 1500 MG AM 2 CAPS + PM 4
     Dates: start: 20070328, end: 20070411

REACTIONS (7)
  - ABDOMINAL DISCOMFORT [None]
  - ABDOMINAL DISTENSION [None]
  - ABDOMINAL PAIN [None]
  - DYSPEPSIA [None]
  - INSOMNIA [None]
  - PHARMACEUTICAL PRODUCT COMPLAINT [None]
  - VOMITING [None]
